FAERS Safety Report 17236613 (Version 1)
Quarter: 2020Q1

REPORT INFORMATION
  Report Type: Spontaneous
  Country: US (occurrence: US)
  Receive Date: 20200106
  Receipt Date: 20200106
  Transmission Date: 20200409
  Serious: No
  Sender: FDA-Public Use
  Company Number: US-MYLANLABS-2019M1132892

PATIENT
  Sex: Male
  Weight: 88 kg

DRUGS (1)
  1. PRUDOXIN [Suspect]
     Active Substance: DOXEPIN HYDROCHLORIDE
     Indication: PRODUCT USED FOR UNKNOWN INDICATION
     Dosage: ^TWICE A DAY^, BID
     Route: 061
     Dates: start: 20191218

REACTIONS (2)
  - Drug ineffective [Not Recovered/Not Resolved]
  - Off label use [Recovering/Resolving]
